FAERS Safety Report 8599190-9 (Version None)
Quarter: 2012Q3

REPORT INFORMATION
  Report Type: 
  Country: None (occurrence: None)
  Receive Date: 20120816
  Receipt Date: 20110811
  Transmission Date: 20120928
  Serious: Yes (Hospitalization)
  Sender: FDA-Public Use
  Company Number: US-AMGEN-USASP2011041140

PATIENT
  Age: 51 Year
  Sex: Female
  Weight: 114.29 kg

DRUGS (1)
  1. NEUPOGEN [Suspect]
     Indication: HAEMATOPOIETIC STEM CELL MOBILISATION
     Dosage: 480 A?G, BID
     Route: 058
     Dates: start: 20110117, end: 20110126

REACTIONS (2)
  - DYSPNOEA [None]
  - COUGH [None]
